FAERS Safety Report 8803256 (Version 2)
Quarter: 2013Q2

REPORT INFORMATION
  Report Type: Report from Study
  Country: CA (occurrence: CA)
  Receive Date: 20120924
  Receipt Date: 20130422
  Transmission Date: 20140414
  Serious: Yes (Hospitalization, Other)
  Sender: FDA-Public Use
  Company Number: CA-JNJFOC-20120906304

PATIENT
  Age: 50 Year
  Sex: Female
  Weight: 60 kg

DRUGS (4)
  1. REMICADE [Suspect]
     Indication: CROHN^S DISEASE
     Route: 042
     Dates: end: 201208
  2. REMICADE [Suspect]
     Indication: CROHN^S DISEASE
     Dosage: DISCONTINUING INFLIXIMAB TREATMENT IN APPROXIMATELY JUNE OR JULY OF 2012
     Route: 042
     Dates: start: 201204, end: 2012
  3. BENADRYL [Concomitant]
     Indication: PREMEDICATION
     Route: 042
  4. SOLUCORTEF [Concomitant]
     Indication: PREMEDICATION
     Route: 042

REACTIONS (2)
  - Intestinal resection [Recovering/Resolving]
  - Obstruction [Unknown]
